FAERS Safety Report 10871136 (Version 1)
Quarter: 2015Q1

REPORT INFORMATION
  Report Type: Spontaneous
  Country: BR (occurrence: BR)
  Receive Date: 20150226
  Receipt Date: 20150226
  Transmission Date: 20150721
  Serious: Yes (Death)
  Sender: FDA-Public Use
  Company Number: BR-ELI_LILLY_AND_COMPANY-BR201502007503

PATIENT
  Sex: Male

DRUGS (3)
  1. ZYPREXA [Suspect]
     Active Substance: OLANZAPINE
     Indication: PRODUCT USED FOR UNKNOWN INDICATION
     Dosage: 2.5 MG, UNKNOWN
     Route: 065
     Dates: start: 2000
  2. ZYPREXA [Suspect]
     Active Substance: OLANZAPINE
     Dosage: 10 MG, UNKNOWN
     Route: 065
  3. ZYPREXA [Suspect]
     Active Substance: OLANZAPINE
     Dosage: 5 MG, UNKNOWN
     Route: 065

REACTIONS (2)
  - Lung disorder [Fatal]
  - Cardiac disorder [Fatal]
